FAERS Safety Report 11490999 (Version 1)
Quarter: 2015Q3

REPORT INFORMATION
  Report Type: Spontaneous
  Country: IT (occurrence: IT)
  Receive Date: 20150910
  Receipt Date: 20150910
  Transmission Date: 20151125
  Serious: Yes (Other)
  Sender: FDA-Public Use
  Company Number: IT-JNJFOC-20150904910

PATIENT
  Age: 27 Year
  Sex: Female

DRUGS (2)
  1. HALDOL [Suspect]
     Active Substance: HALOPERIDOL
     Indication: PRODUCT USED FOR UNKNOWN INDICATION
     Route: 065
     Dates: start: 20150904, end: 20150904
  2. TAVOR [Suspect]
     Active Substance: LORAZEPAM
     Indication: PRODUCT USED FOR UNKNOWN INDICATION
     Route: 065
     Dates: start: 20150904, end: 20150904

REACTIONS (4)
  - Hyperreflexia [Unknown]
  - Sluggishness [Unknown]
  - Self injurious behaviour [Unknown]
  - Hypertonia [Unknown]

NARRATIVE: CASE EVENT DATE: 20150904
